FAERS Safety Report 6211569-9 (Version None)
Quarter: 2009Q2

REPORT INFORMATION
  Report Type: 
  Country: None (occurrence: None)
  Receive Date: 20090522
  Receipt Date: 20090407
  Transmission Date: 20091009
  Serious: No
  Sender: FDA-Public Use
  Company Number: 8044652

PATIENT
  Sex: Female
  Weight: 63.1 kg

DRUGS (5)
  1. CIMZIA [Suspect]
     Indication: CROHN'S DISEASE
     Dosage: 400 MG SC
     Route: 058
  2. NEXIUM [Concomitant]
  3. DOXYCYCLINE [Concomitant]
  4. CORVARYX [Concomitant]
  5. CELEXA [Concomitant]

REACTIONS (1)
  - ALOPECIA [None]
